FAERS Safety Report 9159271 (Version 1)
Quarter: 2013Q1

REPORT INFORMATION
  Report Type: Spontaneous
  Country: US (occurrence: None)
  Receive Date: 20130312
  Receipt Date: 20130312
  Transmission Date: 20140127
  Serious: No
  Sender: FDA-Public Use
  Company Number: None

PATIENT
  Age: 26 Year
  Sex: Female
  Weight: 58.97 kg

DRUGS (1)
  1. BUPIVACAINE [Suspect]
     Indication: CAESAREAN SECTION
     Dates: start: 20121218

REACTIONS (1)
  - Inadequate analgesia [None]
